FAERS Safety Report 23523818 (Version 1)
Quarter: 2024Q1

REPORT INFORMATION
  Report Type: Spontaneous
  Country: US (occurrence: None)
  Receive Date: 20240214
  Receipt Date: 20240214
  Transmission Date: 20240409
  Serious: Yes (Other)
  Sender: FDA-Public Use
  Company Number: None

PATIENT
  Age: 67 Year
  Sex: Female
  Weight: 66.6 kg

DRUGS (7)
  1. SOFOSBUVIR\VELPATASVIR [Suspect]
     Active Substance: SOFOSBUVIR\VELPATASVIR
     Indication: Hepatitis C
     Dosage: OTHER QUANTITY : 1 TABLET(S);?FREQUENCY : AT BEDTIME;?
     Route: 048
     Dates: start: 20240130, end: 20240213
  2. SYNTHROID [Concomitant]
  3. HYDROCODONE [Concomitant]
     Active Substance: HYDROCODONE
  4. Protein Powder [Concomitant]
  5. VITAMIN D [Concomitant]
     Active Substance: VITAMIN D NOS
  6. collagen powder [Concomitant]
  7. amino drink [Concomitant]

REACTIONS (19)
  - Dyspepsia [None]
  - Headache [None]
  - Tinnitus [None]
  - Fatigue [None]
  - Feeling abnormal [None]
  - Abdominal pain [None]
  - Oesophageal pain [None]
  - Dizziness [None]
  - Defaecation urgency [None]
  - Rectal haemorrhage [None]
  - Rectal lesion [None]
  - Hereditary haemorrhagic telangiectasia [None]
  - Condition aggravated [None]
  - Hepatic arteriovenous malformation [None]
  - Liver iron concentration increased [None]
  - Portal vein dilatation [None]
  - Pancreatitis [None]
  - Epistaxis [None]
  - Gastrointestinal angiectasia [None]

NARRATIVE: CASE EVENT DATE: 20240209
